FAERS Safety Report 7592229-9 (Version None)
Quarter: 2011Q3

REPORT INFORMATION
  Report Type: 
  Country: None (occurrence: None)
  Receive Date: 20110706
  Receipt Date: 20110623
  Transmission Date: 20111222
  Serious: Yes (Other)
  Sender: FDA-Public Use
  Company Number: US-ELI_LILLY_AND_COMPANY-US201007001624

PATIENT
  Sex: Female

DRUGS (10)
  1. AMLODIPINE [Concomitant]
  2. VITAMIN D [Concomitant]
  3. FORTEO [Suspect]
     Indication: OSTEOPOROSIS
     Dosage: 20 UG, DAILY (1/D)
     Dates: start: 20100615, end: 20100622
  4. PREDNISONE [Concomitant]
     Dosage: 40 MG, UNKNOWN
  5. VITAMIN B-12 [Concomitant]
  6. FORTEO [Suspect]
     Dosage: 20 UG, QD
  7. METOPROLOL TARTRATE [Concomitant]
  8. FORTEO [Suspect]
     Dosage: 20 UG, DAILY (1/D)
  9. FORTEO [Suspect]
     Dosage: 20 UG, DAILY (1/D)
     Route: 065
  10. FORTEO [Suspect]
     Dosage: 20 UG, DAILY (1/D)

REACTIONS (13)
  - BREAST CANCER [None]
  - NERVOUSNESS [None]
  - TYPE 2 DIABETES MELLITUS [None]
  - SWOLLEN TONGUE [None]
  - PERONEAL NERVE PALSY [None]
  - SWELLING FACE [None]
  - ERYTHEMA [None]
  - BONE PAIN [None]
  - FALL [None]
  - HYPOAESTHESIA [None]
  - PAIN IN EXTREMITY [None]
  - CONTUSION [None]
  - ASTHENIA [None]
